FAERS Safety Report 5914674-7 (Version None)
Quarter: 2008Q4

REPORT INFORMATION
  Report Type: 
  Country: None (occurrence: None)
  Receive Date: 20081008
  Receipt Date: 20081001
  Transmission Date: 20090506
  Serious: Yes (Hospitalization)
  Sender: FDA-Public Use
  Company Number: 2008BI014216

PATIENT
  Age: 51 Year
  Sex: Female

DRUGS (3)
  1. AVONEX [Suspect]
     Indication: MULTIPLE SCLEROSIS
     Dosage: 30 UG;QW;IM
     Route: 030
     Dates: start: 20080515
  2. . [Concomitant]
  3. . [Concomitant]

REACTIONS (7)
  - ALCOHOL WITHDRAWAL SYNDROME [None]
  - ASTHENIA [None]
  - BLOOD ELECTROLYTES DECREASED [None]
  - CONVULSION [None]
  - DEHYDRATION [None]
  - INAPPROPRIATE ANTIDIURETIC HORMONE SECRETION [None]
  - INFLUENZA [None]
